FAERS Safety Report 7685939-6 (Version None)
Quarter: 2011Q3

REPORT INFORMATION
  Report Type: 
  Country: None (occurrence: None)
  Receive Date: 20110816
  Receipt Date: 20110803
  Transmission Date: 20111222
  Serious: Yes (Hospitalization, Other)
  Sender: FDA-Public Use
  Company Number: PHHY2011US67809

PATIENT
  Sex: Female

DRUGS (7)
  1. RECLAST [Suspect]
     Dosage: 5 MG, UNK
     Route: 042
     Dates: start: 20110615
  2. DEPAKOTE [Concomitant]
     Dosage: UNK UKN, UNK
  3. CALCIUM CARBONATE [Concomitant]
  4. ASPIRIN [Concomitant]
  5. PROPRANOLOL [Concomitant]
     Dosage: UNK UKN, UNK
  6. OMEPRAZOLE [Concomitant]
     Dosage: UNK UKN, UNK
  7. LIPITOR [Concomitant]
     Dosage: UNK UKN, UNK

REACTIONS (4)
  - SHOCK [None]
  - HYPOTENSION [None]
  - EPISTAXIS [None]
  - HAEMORRHAGE [None]
